FAERS Safety Report 4963689-4 (Version None)
Quarter: 2006Q1

REPORT INFORMATION
  Report Type: 
  Country: None (occurrence: None)
  Receive Date: 20060330
  Receipt Date: 20060317
  Transmission Date: 20060701
  Serious: Yes (Disabling, Other)
  Sender: FDA-Public Use
  Company Number: 2005138352

PATIENT
  Age: 68 Year
  Sex: Male

DRUGS (16)
  1. AMLODIPINE [Suspect]
     Indication: BLOOD PRESSURE ABNORMAL
     Dosage: 5 MG (DAILY), ORAL
     Route: 048
  2. ATENOLOL [Suspect]
     Indication: BLOOD PRESSURE ABNORMAL
     Dosage: 50 MG (DAILY), ORAL
     Route: 048
  3. NIFEDIPINE [Suspect]
     Indication: HYPERTENSION
     Dosage: (DAILY), ORAL
     Route: 048
     Dates: start: 20040806, end: 20041227
  4. NIFEDIPINE [Suspect]
     Indication: HYPERTENSION
     Dosage: (DAILY), ORAL
     Route: 048
     Dates: start: 20040730
  5. RIFAMPICIN [Suspect]
     Indication: TUBERCULOUS PLEURISY
     Dosage: ORAL
     Route: 048
  6. URAPIDIL (URAPIDIL) [Suspect]
     Indication: BLOOD PRESSURE ABNORMAL
     Dosage: 10 MG (DAILY), ORAL
     Route: 048
  7. CANDESARTAN (CANDESARTAN) [Suspect]
     Indication: BLOOD PRESSURE ABNORMAL
     Dosage: 4 MG (DAILY), ORAL
     Route: 048
  8. CILNIDIPINE (CILNIDIPINE) [Suspect]
     Indication: BLOOD PRESSURE ABNORMAL
     Dosage: 20 MG (DAILY), ORAL
     Route: 048
  9. AROTINOLOL (AROTINOLOL) [Suspect]
     Indication: BLOOD PRESSURE ABNORMAL
     Dosage: 30 MG (DAILY), ORAL
     Route: 048
  10. TEMOCAPRIL (TEMOCAPRIL) [Suspect]
     Indication: BLOOD PRESSURE ABNORMAL
     Dosage: 4 MG (DAILY), ORAL
     Route: 048
  11. CARDENALIN (DOXAZOSIN) [Suspect]
     Indication: BLOOD PRESSURE ABNORMAL
     Dosage: 8 MG (DAILY), ORAL
     Route: 048
  12. ETHAMBUTOL (ETHAMBUTOL) [Concomitant]
  13. ISONIAZID [Concomitant]
  14. ACECOL (TEMOCAPRIL HYDROCHLORIDE) [Concomitant]
  15. SODIUM BICARBONATE IN PLASTIC CONTAINER [Concomitant]
  16. KREMEZIN (CHARCOAL, ACTIVATED) [Concomitant]

REACTIONS (17)
  - BLOOD PRESSURE INCREASED [None]
  - DECREASED APPETITE [None]
  - DIABETES MELLITUS [None]
  - DIALYSIS [None]
  - DRUG INTERACTION [None]
  - DRUG LEVEL DECREASED [None]
  - GASTROINTESTINAL DISORDER [None]
  - HYPERTENSION [None]
  - MALAISE [None]
  - METABOLIC ACIDOSIS [None]
  - NERVOUS SYSTEM DISORDER [None]
  - OEDEMA [None]
  - PLEURAL EFFUSION [None]
  - REFUSAL OF TREATMENT BY PATIENT [None]
  - RENAL FAILURE CHRONIC [None]
  - RESPIRATORY DISORDER [None]
  - TUBERCULOUS PLEURISY [None]
